FAERS Safety Report 9473620 (Version 2)
Quarter: 2013Q3

REPORT INFORMATION
  Report Type: Spontaneous
  Country: US (occurrence: US)
  Receive Date: 20130823
  Receipt Date: 20130823
  Transmission Date: 20140515
  Serious: No
  Sender: FDA-Public Use
  Company Number: US-BRISTOL-MYERS SQUIBB COMPANY-16735250

PATIENT
  Age: 72 Year
  Sex: Male

DRUGS (6)
  1. SPRYCEL [Suspect]
     Indication: CHRONIC MYELOID LEUKAEMIA
     Route: 048
     Dates: start: 201204
  2. CATS CLAW [Concomitant]
  3. NORVASC [Concomitant]
  4. TYLENOL [Concomitant]
  5. PEPCID [Concomitant]
  6. WELLBUTRIN XL [Concomitant]

REACTIONS (2)
  - Fatigue [Recovered/Resolved]
  - Arthralgia [Recovered/Resolved]
